FAERS Safety Report 24804691 (Version 2)
Quarter: 2025Q4

REPORT INFORMATION
  Report Type: Spontaneous
  Country: US (occurrence: US)
  Receive Date: 20250103
  Receipt Date: 20251118
  Transmission Date: 20260119
  Serious: No
  Sender: SANOFI AVENTIS
  Company Number: US-SA-2025SA001384

PATIENT
  Age: 2 Year
  Sex: Female

DRUGS (1)
  1. DUPIXENT [Suspect]
     Active Substance: DUPILUMAB
     Indication: Dermatitis atopic
     Dosage: 200 MG, QM
     Route: 058
     Dates: start: 20240925

REACTIONS (5)
  - Eye pain [Unknown]
  - Hordeolum [Unknown]
  - Eye irritation [Unknown]
  - Blepharitis [Unknown]
  - Rash [Unknown]

NARRATIVE: CASE EVENT DATE: 20240101
